FAERS Safety Report 8451786-0 (Version None)
Quarter: 2012Q2

REPORT INFORMATION
  Report Type: 
  Country: None (occurrence: None)
  Receive Date: 20120620
  Receipt Date: 20120613
  Transmission Date: 20120825
  Serious: Yes (Hospitalization, Other)
  Sender: FDA-Public Use
  Company Number: US-ROCHE-791262

PATIENT
  Sex: Male
  Weight: 83.99 kg

DRUGS (2)
  1. SOTRET [Suspect]
     Indication: PRODUCT USED FOR UNKNOWN INDICATION
  2. ACCUTANE [Suspect]
     Indication: ACNE
     Route: 048
     Dates: start: 20030101, end: 20060101

REACTIONS (4)
  - ANXIETY [None]
  - INFLAMMATORY BOWEL DISEASE [None]
  - DRY SKIN [None]
  - COLITIS ULCERATIVE [None]
